FAERS Safety Report 6058469-5 (Version None)
Quarter: 2009Q1

REPORT INFORMATION
  Report Type: 
  Country: None (occurrence: None)
  Receive Date: 20090130
  Receipt Date: 20090127
  Transmission Date: 20090719
  Serious: Yes (Other)
  Sender: FDA-Public Use
  Company Number: FR-WYE-G03005309

PATIENT
  Sex: Male

DRUGS (2)
  1. TYGACIL [Suspect]
     Indication: OSTEOMYELITIS BACTERIAL
     Route: 042
     Dates: start: 20081201
  2. TYGACIL [Suspect]
     Indication: ENTEROBACTER INFECTION

REACTIONS (1)
  - ILEUS [None]
